FAERS Safety Report 25198806 (Version 1)
Quarter: 2025Q2

REPORT INFORMATION
  Report Type: Spontaneous
  Country: US (occurrence: None)
  Receive Date: 20250415
  Receipt Date: 20250415
  Transmission Date: 20250717
  Serious: Yes (Disabling)
  Sender: FDA-CTU
  Company Number: None

PATIENT
  Age: 54 Year
  Sex: Male
  Weight: 94.5 kg

DRUGS (1)
  1. DUPIXENT [Suspect]
     Active Substance: DUPILUMAB
     Indication: Eczema
     Dates: start: 20231215, end: 20250225

REACTIONS (5)
  - Erythema [None]
  - Eczema [None]
  - Dry eye [None]
  - Lacrimation increased [None]
  - Pruritus [None]

NARRATIVE: CASE EVENT DATE: 20250225
